FAERS Safety Report 20913510 (Version 2)
Quarter: 2022Q2

REPORT INFORMATION
  Report Type: Report from Study
  Country: CA (occurrence: CA)
  Receive Date: 20220603
  Receipt Date: 20220606
  Transmission Date: 20220720
  Serious: Yes (Other)
  Sender: FDA-Public Use
  Company Number: CA-ABBVIE-22K-028-4377020-00

PATIENT
  Sex: Female

DRUGS (2)
  1. RINVOQ [Suspect]
     Active Substance: UPADACITINIB
     Indication: Dermatitis atopic
     Dosage: DOSE DECREASED
     Route: 048
     Dates: start: 20220408, end: 2022
  2. RINVOQ [Suspect]
     Active Substance: UPADACITINIB
     Route: 048
     Dates: start: 2022, end: 20220527

REACTIONS (19)
  - Intestinal haemorrhage [Not Recovered/Not Resolved]
  - Epistaxis [Not Recovered/Not Resolved]
  - Sinus congestion [Unknown]
  - Hypersensitivity [Unknown]
  - Scab [Unknown]
  - Skin fissures [Not Recovered/Not Resolved]
  - Blood cholesterol abnormal [Unknown]
  - Limb injury [Unknown]
  - Joint swelling [Unknown]
  - Pain in extremity [Unknown]
  - Urticaria [Unknown]
  - Incorrect dose administered [Unknown]
  - Abscess limb [Unknown]
  - Mass [Unknown]
  - Blister infected [Recovering/Resolving]
  - Skin lesion [Unknown]
  - Wound [Unknown]
  - Diarrhoea [Unknown]
  - Dermatitis atopic [Unknown]

NARRATIVE: CASE EVENT DATE: 20220101
